FAERS Safety Report 20853036 (Version 3)
Quarter: 2024Q1

REPORT INFORMATION
  Report Type: Report from Study
  Country: CA (occurrence: None)
  Receive Date: 20220520
  Receipt Date: 20240131
  Transmission Date: 20240409
  Serious: Yes (Hospitalization, Other)
  Sender: FDA-Public Use
  Company Number: CA-PFIZER INC-202200717849

PATIENT
  Age: 66 Year
  Sex: Female

DRUGS (16)
  1. METHOTREXATE [Suspect]
     Active Substance: METHOTREXATE
     Indication: Product used for unknown indication
  2. METHOTREXATE [Suspect]
     Active Substance: METHOTREXATE
  3. RITUXIMAB [Suspect]
     Active Substance: RITUXIMAB
     Indication: Rheumatoid arthritis
  4. RITUXIMAB [Suspect]
     Active Substance: RITUXIMAB
  5. ACETAMINOPHEN [Concomitant]
     Active Substance: ACETAMINOPHEN
  6. DIPHENHYDRAMINE [Concomitant]
     Active Substance: DIPHENHYDRAMINE
  7. METHYLPREDNISOLONE [Concomitant]
     Active Substance: METHYLPREDNISOLONE
  8. DEXILANT [Concomitant]
     Active Substance: DEXLANSOPRAZOLE
  9. ERGOCALCIFEROL [Concomitant]
     Active Substance: ERGOCALCIFEROL
     Dosage: UNK, WEEKLY
  10. IRON [Concomitant]
     Active Substance: IRON
  11. NADOLOL [Concomitant]
     Active Substance: NADOLOL
  12. POTASSIUM [Concomitant]
     Active Substance: POTASSIUM
  13. VITAMIN C [Concomitant]
     Active Substance: ASCORBIC ACID
  14. ARAVA [Concomitant]
     Active Substance: LEFLUNOMIDE
  15. OFEV [Concomitant]
     Active Substance: NINTEDANIB
  16. PREDNISONE [Concomitant]
     Active Substance: PREDNISONE

REACTIONS (5)
  - Hepatic cirrhosis [Unknown]
  - Osteomyelitis [Unknown]
  - Pain [Unknown]
  - Anaemia [Unknown]
  - Interstitial lung disease [Unknown]
